FAERS Safety Report 23342091 (Version 1)
Quarter: 2023Q4

REPORT INFORMATION
  Report Type: Spontaneous
  Country: US (occurrence: None)
  Receive Date: 20231226
  Receipt Date: 20231226
  Transmission Date: 20240110
  Serious: Yes (Hospitalization, Disabling, Other)
  Sender: FDA-Public Use
  Company Number: None

PATIENT
  Age: 63 Year
  Sex: Male
  Weight: 83.7 kg

DRUGS (12)
  1. ALFUZOSIN HYDROCHLORIDE [Suspect]
     Active Substance: ALFUZOSIN HYDROCHLORIDE
     Indication: Benign prostatic hyperplasia
     Dosage: OTHER QUANTITY : 1 TABLET(S);?FREQUENCY : DAILY;?
     Route: 048
     Dates: start: 20231106, end: 20231113
  2. BUPROPION [Concomitant]
     Active Substance: BUPROPION
  3. TAMSULOSIN [Concomitant]
     Active Substance: TAMSULOSIN
  4. ADDERALL XR [Concomitant]
     Active Substance: AMPHETAMINE ASPARTATE\AMPHETAMINE SULFATE\DEXTROAMPHETAMINE SACCHARATE\DEXTROAMPHETAMINE SULFATE
  5. SULFASALAZINE [Concomitant]
     Active Substance: SULFASALAZINE
  6. LEXAPRO [Concomitant]
     Active Substance: ESCITALOPRAM OXALATE
  7. SIMPONI ARIA [Concomitant]
     Active Substance: GOLIMUMAB
  8. ResMed AirSense [Concomitant]
  9. DEVICE [Concomitant]
     Active Substance: DEVICE
  10. DOCONEXENT\ ICOSAPENT\ FISH OIL\ OMEGA-3 FATTY ACIDS [Concomitant]
     Active Substance: DOCONEXENT\ ICOSAPENT\ FISH OIL\ OMEGA-3 FATTY ACIDS
  11. Green Tea Leaf Ext + Green Tea [Concomitant]
  12. One-a-Day Men^s 50+ Advanced Multivitamin Gummies [Concomitant]

REACTIONS (7)
  - Adverse drug reaction [None]
  - Lip swelling [None]
  - Swelling face [None]
  - Dry mouth [None]
  - Sudden hearing loss [None]
  - Deafness unilateral [None]
  - Tinnitus [None]

NARRATIVE: CASE EVENT DATE: 20231113
